FAERS Safety Report 7564780-9 (Version None)
Quarter: 2011Q2

REPORT INFORMATION
  Report Type: 
  Country: None (occurrence: None)
  Receive Date: 20110622
  Receipt Date: 20101209
  Transmission Date: 20111010
  Serious: Yes (Other)
  Sender: FDA-Public Use
  Company Number: US-MYLANLABS-2010S1021127

PATIENT
  Age: 61 Year
  Sex: Male
  Weight: 81.65 kg

DRUGS (15)
  1. NORVASC [Concomitant]
     Indication: HYPERTENSION
     Route: 048
  2. LIPITOR [Concomitant]
     Indication: HYPERLIPIDAEMIA
     Route: 048
  3. PROTONIX [Concomitant]
     Indication: GASTROINTESTINAL DISORDER
     Route: 048
  4. SPIRIVA [Concomitant]
     Indication: BRONCHOSPASM
     Route: 055
  5. GEODON [Concomitant]
     Indication: PSYCHOTIC DISORDER
     Route: 048
  6. SENOKOT [Concomitant]
     Indication: CONSTIPATION
     Dosage: ONCE DAILY
     Route: 048
  7. CLOZAPINE [Suspect]
     Route: 048
  8. TENORMIN [Concomitant]
     Indication: HYPERTENSION
     Route: 048
  9. CLOZAPINE [Suspect]
     Indication: PSYCHOTIC DISORDER
     Route: 048
     Dates: end: 20101108
  10. LITHIUM [Concomitant]
     Indication: MOOD SWINGS
     Route: 048
  11. ATIVAN [Concomitant]
     Indication: AGITATION
     Route: 048
  12. PSYLLIUM /01328801/ [Concomitant]
     Route: 048
  13. CLOZAPINE [Suspect]
     Route: 048
     Dates: end: 20101108
  14. ASPIRIN [Concomitant]
     Indication: CARDIOVASCULAR EVENT PROPHYLAXIS
     Route: 048
  15. COLACE [Concomitant]
     Route: 048

REACTIONS (1)
  - GRANULOCYTOPENIA [None]
